FAERS Safety Report 14010563 (Version 11)
Quarter: 2018Q3

REPORT INFORMATION
  Report Type: Report from Study
  Country: IT (occurrence: IT)
  Receive Date: 20170926
  Receipt Date: 20180814
  Transmission Date: 20181010
  Serious: Yes (Life-Threatening, Hospitalization)
  Sender: FDA-Public Use
  Company Number: IT-ROCHE-1972274

PATIENT
  Age: 44 Year
  Sex: Female
  Weight: 45 kg

DRUGS (113)
  1. CHLORPHENAMINE [Concomitant]
     Active Substance: CHLORPHENIRAMINE MALEATE
     Route: 065
     Dates: start: 20130117
  2. CHLORPHENAMINE [Concomitant]
     Active Substance: CHLORPHENIRAMINE MALEATE
     Route: 065
     Dates: start: 20131217
  3. CHLORPHENAMINE [Concomitant]
     Active Substance: CHLORPHENIRAMINE MALEATE
     Route: 065
     Dates: start: 20140619
  4. CHLORPHENAMINE [Concomitant]
     Active Substance: CHLORPHENIRAMINE MALEATE
     Dosage: OLE:OPEN LABEL OCRELIZUMAB
     Route: 065
     Dates: start: 20141201
  5. CHLORPHENAMINE [Concomitant]
     Active Substance: CHLORPHENIRAMINE MALEATE
     Route: 065
     Dates: start: 20141215
  6. CHLORPHENAMINE [Concomitant]
     Active Substance: CHLORPHENIRAMINE MALEATE
     Route: 065
     Dates: start: 20151029
  7. CHLORPHENAMINE [Concomitant]
     Active Substance: CHLORPHENIRAMINE MALEATE
     Route: 065
     Dates: start: 20170324
  8. METHYLPREDNISOLONE. [Concomitant]
     Active Substance: METHYLPREDNISOLONE
     Route: 065
     Dates: start: 20130705, end: 20130705
  9. METHYLPREDNISOLONE. [Concomitant]
     Active Substance: METHYLPREDNISOLONE
     Route: 065
     Dates: start: 20151029, end: 20151029
  10. METHYLPREDNISOLONE. [Concomitant]
     Active Substance: METHYLPREDNISOLONE
     Route: 065
     Dates: start: 20160929, end: 20160929
  11. BACTRIM [Concomitant]
     Active Substance: SULFAMETHOXAZOLE\TRIMETHOPRIM
     Route: 065
     Dates: start: 20180130
  12. CITOFOLIN [Concomitant]
     Route: 065
     Dates: start: 20180130
  13. RED BLOOD CELL, CONCENTRATED [Concomitant]
     Dosage: 2 BAG
     Route: 065
     Dates: start: 20170809, end: 20170809
  14. FIBRINOGEN [Concomitant]
     Active Substance: FIBRINOGEN HUMAN
     Route: 065
     Dates: start: 20170809, end: 20170809
  15. BLOOD TRANSFUSION [Concomitant]
     Active Substance: HUMAN RED BLOOD CELL
     Route: 065
     Dates: start: 20170806, end: 20170806
  16. VOLTAREN [Concomitant]
     Active Substance: DICLOFENAC SODIUM
     Route: 065
     Dates: start: 20140203, end: 20140205
  17. PROMETRIUM [Concomitant]
     Active Substance: PROGESTERONE
     Route: 065
     Dates: start: 20180528
  18. CHLORPHENAMINE [Concomitant]
     Active Substance: CHLORPHENIRAMINE MALEATE
     Route: 065
     Dates: start: 20160422
  19. CHLORPHENAMINE [Concomitant]
     Active Substance: CHLORPHENIRAMINE MALEATE
     Route: 065
     Dates: start: 20160929
  20. RABEPRAZOLO [Concomitant]
     Route: 065
     Dates: start: 20170810
  21. ERTAPENEM. [Concomitant]
     Active Substance: ERTAPENEM SODIUM
     Route: 065
     Dates: start: 201708, end: 201708
  22. ADRENALIN [Concomitant]
     Active Substance: EPINEPHRINE
     Route: 065
     Dates: start: 20170809, end: 20170809
  23. LEVOFLOXACIN. [Concomitant]
     Active Substance: LEVOFLOXACIN
     Route: 065
     Dates: start: 20171218, end: 20171218
  24. LANTUS [Concomitant]
     Active Substance: INSULIN GLARGINE
     Route: 065
     Dates: start: 20170810, end: 201712
  25. LANTUS [Concomitant]
     Active Substance: INSULIN GLARGINE
     Route: 065
     Dates: start: 20180105
  26. PERFALGAN [Concomitant]
     Active Substance: ACETAMINOPHEN
     Route: 065
     Dates: start: 20180118, end: 20180118
  27. OCRELIZUMAB. [Suspect]
     Active Substance: OCRELIZUMAB
     Indication: RELAPSING-REMITTING MULTIPLE SCLEROSIS
     Dosage: DAYS 1 AND 15 OF FIRST 24 WEEK CYCLE FOLLOWED BY DAY 1 OF EACH SUBSEQUENT 24 WEEK CYCLE AS PER PROTO
     Route: 042
     Dates: start: 20141201, end: 20171120
  28. METHYLPREDNISOLONE. [Concomitant]
     Active Substance: METHYLPREDNISOLONE
     Route: 065
     Dates: start: 20140619, end: 20140619
  29. METHYLPREDNISOLONE. [Concomitant]
     Active Substance: METHYLPREDNISOLONE
     Route: 065
     Dates: start: 20141215, end: 20141215
  30. METHYLPREDNISOLONE. [Concomitant]
     Active Substance: METHYLPREDNISOLONE
     Route: 065
     Dates: start: 20150519, end: 20150519
  31. TACROLIMUS. [Concomitant]
     Active Substance: TACROLIMUS
     Route: 065
     Dates: start: 20170810
  32. GABAPENTIN. [Concomitant]
     Active Substance: GABAPENTIN
     Indication: DYSAESTHESIA
     Route: 065
     Dates: start: 20180130
  33. PIPERACILLIN/TAZOBACTAM [Concomitant]
     Active Substance: PIPERACILLIN SODIUM\TAZOBACTAM SODIUM
     Route: 065
     Dates: start: 20180111, end: 20180111
  34. DAPTOMICINA [Concomitant]
     Active Substance: DAPTOMYCIN
     Route: 065
     Dates: start: 201708, end: 201708
  35. NORADRENALINE [Concomitant]
     Active Substance: NOREPINEPHRINE
     Route: 065
     Dates: start: 20170809, end: 20170809
  36. LANTUS [Concomitant]
     Active Substance: INSULIN GLARGINE
     Route: 065
     Dates: start: 20171223, end: 201801
  37. LANSOPRAZOLE. [Concomitant]
     Active Substance: LANSOPRAZOLE
     Route: 065
     Dates: start: 20170801, end: 20170804
  38. BLOOD TRANSFUSION [Concomitant]
     Active Substance: HUMAN RED BLOOD CELL
     Route: 065
     Dates: start: 20170804, end: 20170804
  39. CEFTOBIPROLE [Concomitant]
     Active Substance: CEFTOBIPROLE
     Route: 065
     Dates: start: 20180112, end: 20180112
  40. NORETHISTERONE [Concomitant]
     Active Substance: NORETHINDRONE
     Indication: METRORRHAGIA
     Route: 065
     Dates: start: 201804, end: 201805
  41. SODIUM BICARBONATE. [Concomitant]
     Active Substance: SODIUM BICARBONATE
     Route: 065
     Dates: start: 20180607
  42. PARACETAMOL [Concomitant]
     Active Substance: ACETAMINOPHEN
     Indication: PYREXIA
     Dosage: RECEIVED ON 17/JAN/2013, 01/FEB/2013, 05/JUL/2013, 17/DEC/2013, 19/JUN/2014, 01/DEC/2014, 15/DEC/201
     Route: 065
  43. OMEPRAZOLE. [Concomitant]
     Active Substance: OMEPRAZOLE
     Indication: HIATUS HERNIA
     Route: 065
     Dates: start: 201211
  44. CARVEDILOL. [Concomitant]
     Active Substance: CARVEDILOL
     Indication: HYPERTENSION
     Route: 065
     Dates: start: 20170810
  45. DEURSIL [Concomitant]
     Active Substance: URSODIOL
     Route: 065
     Dates: start: 20170810
  46. TACROLIMUS. [Concomitant]
     Active Substance: TACROLIMUS
     Route: 065
     Dates: start: 20180131
  47. PIPERACILLIN/TAZOBACTAM [Concomitant]
     Active Substance: PIPERACILLIN SODIUM\TAZOBACTAM SODIUM
     Indication: SEPSIS
     Dosage: 1 TABLET
     Route: 065
     Dates: start: 20180107, end: 201801
  48. LEVOFLOXACIN. [Concomitant]
     Active Substance: LEVOFLOXACIN
     Indication: INFLUENZA LIKE ILLNESS
     Route: 065
     Dates: start: 201712, end: 201712
  49. LANTUS [Concomitant]
     Active Substance: INSULIN GLARGINE
     Route: 065
     Dates: start: 201712, end: 20171222
  50. ZANTAC [Concomitant]
     Active Substance: RANITIDINE HYDROCHLORIDE
     Route: 065
     Dates: start: 20170802, end: 20170802
  51. KONAKION [Concomitant]
     Active Substance: PHYTONADIONE
     Route: 065
     Dates: start: 20170803, end: 20170804
  52. CODEX (ITALY) [Concomitant]
     Indication: PROPHYLAXIS
     Route: 065
     Dates: start: 20180607
  53. PLACEBO [Suspect]
     Active Substance: UNSPECIFIED INGREDIENT
     Indication: RELAPSING-REMITTING MULTIPLE SCLEROSIS
     Route: 058
     Dates: start: 20130117
  54. PLACEBO [Suspect]
     Active Substance: UNSPECIFIED INGREDIENT
     Dosage: MOST RECENT DOSE RECEIVED ON 29/NOV/2014
     Route: 058
     Dates: start: 20141122
  55. METHYLPREDNISOLONE. [Concomitant]
     Active Substance: METHYLPREDNISOLONE
     Route: 065
     Dates: start: 20131217, end: 20131217
  56. METHYLPREDNISOLONE. [Concomitant]
     Active Substance: METHYLPREDNISOLONE
     Dosage: OLE: OPEN LABEL OCELIZUMAB
     Route: 065
     Dates: start: 20141201, end: 20141201
  57. OMEPRAZEN [Concomitant]
     Active Substance: OMEPRAZOLE
     Route: 065
     Dates: start: 201211
  58. IMMUNOGLOBULIN [Concomitant]
     Route: 065
     Dates: start: 201801, end: 201801
  59. PIPERACILLIN/TAZOBACTAM [Concomitant]
     Active Substance: PIPERACILLIN SODIUM\TAZOBACTAM SODIUM
     Route: 065
     Dates: start: 20180108, end: 20180109
  60. VANCOMICINA [Concomitant]
     Active Substance: VANCOMYCIN
     Indication: SEPSIS
     Route: 065
     Dates: start: 20180109, end: 20180110
  61. SIMULECT [Concomitant]
     Active Substance: BASILIXIMAB
     Route: 065
     Dates: start: 201708, end: 201708
  62. PERFALGAN [Concomitant]
     Active Substance: ACETAMINOPHEN
     Route: 065
     Dates: start: 20180108, end: 20180108
  63. IBUPROFENE [Concomitant]
     Active Substance: IBUPROFEN
     Route: 065
     Dates: start: 20180113, end: 20180113
  64. PANTOPRAZOLE [Concomitant]
     Active Substance: PANTOPRAZOLE
     Route: 065
     Dates: start: 20180109, end: 20180109
  65. NOVALGINA [Concomitant]
     Active Substance: METAMIZOLE SODIUM
     Route: 065
     Dates: start: 20170802, end: 20170802
  66. CHLORPHENAMINE [Concomitant]
     Active Substance: CHLORPHENIRAMINE MALEATE
     Route: 065
     Dates: start: 20130201
  67. CHLORPHENAMINE [Concomitant]
     Active Substance: CHLORPHENIRAMINE MALEATE
     Route: 065
     Dates: start: 20150519
  68. METHYLPREDNISOLONE. [Concomitant]
     Active Substance: METHYLPREDNISOLONE
     Route: 065
     Dates: start: 20130201, end: 20130201
  69. METHYLPREDNISOLONE. [Concomitant]
     Active Substance: METHYLPREDNISOLONE
     Route: 065
     Dates: start: 20160422, end: 20160422
  70. METHYLPREDNISOLONE. [Concomitant]
     Active Substance: METHYLPREDNISOLONE
     Route: 065
     Dates: start: 20170324, end: 20170324
  71. METOCLOPRAMIDE. [Concomitant]
     Active Substance: METOCLOPRAMIDE
     Indication: VOMITING
     Route: 065
     Dates: start: 20170728, end: 2017
  72. CARDIOASPIRINA [Concomitant]
     Active Substance: ASPIRIN
     Route: 065
     Dates: start: 20170810
  73. HUMALOG [Concomitant]
     Active Substance: INSULIN LISPRO
     Indication: DIABETES MELLITUS
     Route: 065
     Dates: start: 20170801, end: 20180130
  74. GABAPENTIN. [Concomitant]
     Active Substance: GABAPENTIN
     Dosage: AND 1 MG
     Route: 065
     Dates: start: 20180131
  75. PIPERACILLIN/TAZOBACTAM [Concomitant]
     Active Substance: PIPERACILLIN SODIUM\TAZOBACTAM SODIUM
     Route: 065
     Dates: start: 20180110, end: 20180110
  76. VANCOMICINA [Concomitant]
     Active Substance: VANCOMYCIN
     Route: 065
     Dates: start: 20180110, end: 20180112
  77. CIPROFLOXACINA [Concomitant]
     Active Substance: CIPROFLOXACIN
     Route: 065
     Dates: start: 201708, end: 201708
  78. LANTUS [Concomitant]
     Active Substance: INSULIN GLARGINE
     Indication: DIABETES MELLITUS
     Route: 065
     Dates: start: 20180105
  79. CEFTOBIPROLE [Concomitant]
     Active Substance: CEFTOBIPROLE
     Route: 065
     Dates: start: 20180121, end: 20180121
  80. LIMICAN [Concomitant]
     Active Substance: ALIZAPRIDE HYDROCHLORIDE
     Route: 065
     Dates: start: 20180107, end: 20180107
  81. PERFALGAN [Concomitant]
     Active Substance: ACETAMINOPHEN
     Route: 065
     Dates: start: 20180121, end: 20180121
  82. CARDIAZOL?PARACODINA [Concomitant]
     Dosage: 10 DROP
     Route: 065
     Dates: start: 20180110, end: 20180110
  83. TAMIFLU [Concomitant]
     Active Substance: OSELTAMIVIR PHOSPHATE
     Route: 065
     Dates: start: 20180123, end: 20180124
  84. VOLTAREN [Concomitant]
     Active Substance: DICLOFENAC SODIUM
     Route: 065
     Dates: start: 20170802, end: 20170802
  85. EVEROLIMUS. [Concomitant]
     Active Substance: EVEROLIMUS
     Indication: LIVER TRANSPLANT
     Route: 065
     Dates: start: 201802
  86. CHLORHEXIDINE [Concomitant]
     Active Substance: CHLORHEXIDINE
     Indication: APHTHOUS ULCER
     Dosage: 1 RINSE
     Route: 065
     Dates: start: 20180717
  87. PARACETAMOL [Concomitant]
     Active Substance: ACETAMINOPHEN
     Indication: HEADACHE
     Route: 065
     Dates: start: 20150216
  88. CHLORPHENAMINE [Concomitant]
     Active Substance: CHLORPHENIRAMINE MALEATE
     Route: 065
     Dates: start: 20130705
  89. CHLORPHENAMINE [Concomitant]
     Active Substance: CHLORPHENIRAMINE MALEATE
     Route: 065
     Dates: start: 20180121, end: 20180121
  90. RIFAXIMINE [Concomitant]
     Route: 065
     Dates: start: 20170715, end: 20170724
  91. ABASAGLAR [Concomitant]
     Active Substance: INSULIN GLARGINE
     Route: 065
     Dates: start: 20170810
  92. LAMIVUDINA [Concomitant]
     Active Substance: LAMIVUDINE
     Route: 065
     Dates: start: 20171227
  93. LYRICA [Concomitant]
     Active Substance: PREGABALIN
     Indication: DYSAESTHESIA
     Route: 065
     Dates: start: 20171001
  94. MINESSE [Concomitant]
     Active Substance: ETHINYL ESTRADIOL\GESTODENE
     Dosage: 1 TABLET
     Route: 065
     Dates: start: 20121219, end: 20141126
  95. PIPERACILLIN/TAZOBACTAM [Concomitant]
     Active Substance: PIPERACILLIN SODIUM\TAZOBACTAM SODIUM
     Route: 065
     Dates: start: 20170804, end: 20170804
  96. VANCOMICINA [Concomitant]
     Active Substance: VANCOMYCIN
     Route: 065
     Dates: start: 20180119, end: 20180122
  97. FUROSEMIDE. [Concomitant]
     Active Substance: FUROSEMIDE
     Route: 065
     Dates: start: 201708, end: 201708
  98. MEROPENEM. [Concomitant]
     Active Substance: MEROPENEM
     Route: 065
     Dates: start: 201708, end: 201708
  99. BLOOD TRANSFUSION [Concomitant]
     Active Substance: HUMAN RED BLOOD CELL
     Route: 065
     Dates: start: 20170805, end: 20170805
  100. PERFALGAN [Concomitant]
     Active Substance: ACETAMINOPHEN
     Route: 065
     Dates: start: 20180107, end: 20180107
  101. PERFALGAN [Concomitant]
     Active Substance: ACETAMINOPHEN
     Route: 065
     Dates: start: 20171218, end: 20171218
  102. TAMIFLU [Concomitant]
     Active Substance: OSELTAMIVIR PHOSPHATE
     Route: 065
     Dates: start: 20180119, end: 20180121
  103. ACETYLCYSTEINE. [Concomitant]
     Active Substance: ACETYLCYSTEINE
     Route: 065
     Dates: start: 20170803, end: 20170804
  104. METHYLPREDNISOLONE. [Concomitant]
     Active Substance: METHYLPREDNISOLONE
     Route: 065
     Dates: start: 20130117, end: 20130117
  105. LAMIVUDINA [Concomitant]
     Active Substance: LAMIVUDINE
     Indication: CHRONIC HEPATITIS B
     Route: 065
     Dates: start: 20170810, end: 20171223
  106. TACROLIMUS. [Concomitant]
     Active Substance: TACROLIMUS
     Route: 065
     Dates: start: 20180131
  107. PIPERACILLIN/TAZOBACTAM [Concomitant]
     Active Substance: PIPERACILLIN SODIUM\TAZOBACTAM SODIUM
     Route: 065
     Dates: start: 20170803, end: 20170803
  108. VANCOMICINA [Concomitant]
     Active Substance: VANCOMYCIN
     Route: 065
     Dates: start: 20180113, end: 20180118
  109. MYCOPHENOLATE MOFETIL. [Concomitant]
     Active Substance: MYCOPHENOLATE MOFETIL
     Route: 065
     Dates: start: 201708, end: 201708
  110. MUCOSYTE [Concomitant]
     Route: 065
     Dates: start: 201708, end: 201708
  111. CEFTOBIPROLE [Concomitant]
     Active Substance: CEFTOBIPROLE
     Indication: SEPSIS
     Route: 065
     Dates: start: 20180111, end: 20180111
  112. IBUPROFENE [Concomitant]
     Active Substance: IBUPROFEN
     Route: 065
     Dates: start: 20180108, end: 20180112
  113. OCRELIZUMAB. [Suspect]
     Active Substance: OCRELIZUMAB
     Indication: RELAPSING-REMITTING MULTIPLE SCLEROSIS
     Dosage: DAYS 1 AND 15 OF FIRST 24 WEEK CYCLE FOLLOWED BY DAY 1 OF EACH SUBSEQUENT 24 WEEK CYCLE AS PER PROTO
     Route: 042
     Dates: start: 20130117, end: 20140619

REACTIONS (1)
  - Hepatitis fulminant [Recovered/Resolved with Sequelae]

NARRATIVE: CASE EVENT DATE: 20170715
